FAERS Safety Report 9291214 (Version 2)
Quarter: 2013Q4

REPORT INFORMATION
  Report Type: Spontaneous
  Country: US (occurrence: US)
  Receive Date: 20130515
  Receipt Date: 20131030
  Transmission Date: 20140711
  Serious: Yes (Hospitalization)
  Sender: FDA-Public Use
  Company Number: US-B.I. PHARMACEUTICALS,INC./RIDGEFIELD-2013-BI-13311BP

PATIENT
  Age: 90 Year
  Sex: Female
  Weight: 61.23 kg

DRUGS (7)
  1. PRADAXA [Suspect]
     Indication: ANTICOAGULANT THERAPY
     Dates: start: 20110527, end: 20110720
  2. PRADAXA [Suspect]
     Indication: ATRIAL FIBRILLATION
  3. CELEXA [Concomitant]
     Dosage: 20 MG
  4. LASIX [Concomitant]
     Dosage: 40 MG
  5. AVAPRO [Concomitant]
     Dosage: 75 MG
  6. LEVOTHYROXINE [Concomitant]
     Dosage: 75 MCG
  7. PROTONIX [Concomitant]
     Dosage: 40 MG

REACTIONS (1)
  - Lower gastrointestinal haemorrhage [Unknown]
